FAERS Safety Report 20354115 (Version 1)
Quarter: 2022Q1

REPORT INFORMATION
  Report Type: Other
  Country: CA (occurrence: CA)
  Receive Date: 20220120
  Receipt Date: 20220120
  Transmission Date: 20220423
  Serious: Yes (Hospitalization, Other)
  Sender: FDA-Public Use
  Company Number: CA-CELLTRION INC.-2022CA000367

PATIENT

DRUGS (14)
  1. RITUXIMAB [Suspect]
     Active Substance: RITUXIMAB
     Indication: Glomerulonephritis membranous
     Dosage: 1000 MG
     Route: 042
  2. RITUXIMAB [Suspect]
     Active Substance: RITUXIMAB
     Dosage: UNK
     Route: 042
  3. ACETAMINOPHEN [Concomitant]
     Active Substance: ACETAMINOPHEN
     Dosage: 500 MG
     Route: 065
  4. AMLODIPINE [Concomitant]
     Active Substance: AMLODIPINE BESYLATE
     Dosage: 10 MG, 1 EVERY 1 DAYS
     Route: 065
  5. ATORVASTATIN CALCIUM [Concomitant]
     Active Substance: ATORVASTATIN CALCIUM
     Dosage: 20 MG
     Route: 048
  6. COLCHICINE [Concomitant]
     Active Substance: COLCHICINE
     Dosage: 0.6 MG, 2 EVERY 1 DAYS
     Route: 065
  7. DAPSONE [Concomitant]
     Active Substance: DAPSONE
     Dosage: 100 MG, 1 EVERY 1 DAYS
     Route: 065
  8. EZETIMIBE [Concomitant]
     Active Substance: EZETIMIBE
     Dosage: 10 MG,1 EVERY 1 DAYS
     Route: 065
  9. FUROSEMIDE [Concomitant]
     Active Substance: FUROSEMIDE
     Dosage: 40 MG, 1 EVERY 1 DAYS
     Route: 065
  10. INDAPAMIDE [Concomitant]
     Active Substance: INDAPAMIDE
     Dosage: 2.5 MG, 1 EVERY 1 DAYS
     Route: 065
  11. METHOCARBAMOL [Concomitant]
     Active Substance: METHOCARBAMOL
     Dosage: 2 DOSAGE FORM
     Route: 065
  12. METHYLPREDNISOLONE [Concomitant]
     Active Substance: METHYLPREDNISOLONE
     Route: 065
  13. PERINDOPRIL [Concomitant]
     Active Substance: PERINDOPRIL
     Dosage: 8 MG, 1 EVERY 1 DAYS
     Route: 065
  14. SEPTRA [Concomitant]
     Active Substance: SULFAMETHOXAZOLE\TRIMETHOPRIM
     Indication: Prophylaxis
     Dosage: 1 EVERY 3 WEEKS
     Route: 065

REACTIONS (9)
  - Skin exfoliation [Recovered/Resolved]
  - Throat irritation [Recovered/Resolved]
  - Asthenia [Recovered/Resolved]
  - Flushing [Recovered/Resolved]
  - Hypersensitivity [Recovered/Resolved]
  - Pruritus [Recovered/Resolved]
  - Rash pruritic [Recovered/Resolved]
  - Off label use [Recovered/Resolved]
  - Off label use [Unknown]
